FAERS Safety Report 12473986 (Version 3)
Quarter: 2018Q2

REPORT INFORMATION
  Report Type: Spontaneous
  Country: FR (occurrence: FR)
  Receive Date: 20160616
  Receipt Date: 20180405
  Transmission Date: 20180711
  Serious: Yes (Hospitalization)
  Sender: FDA-Public Use
  Company Number: FR-ABBVIE-16P-056-1635198-00

PATIENT
  Age: 26 Year
  Sex: Female

DRUGS (3)
  1. DEPAKINE CHRONO [Suspect]
     Active Substance: VALPROATE SODIUM
     Route: 048
     Dates: start: 19990525
  2. DEPAKINE CHRONO [Suspect]
     Active Substance: VALPROATE SODIUM
     Indication: GENERALISED TONIC-CLONIC SEIZURE
     Route: 048
     Dates: start: 198205
  3. DEPAKINE CHRONO [Suspect]
     Active Substance: VALPROATE SODIUM
     Route: 048
     Dates: start: 199905

REACTIONS (6)
  - Loss of consciousness [Unknown]
  - Drug dose omission [Unknown]
  - Epilepsy [Recovered/Resolved]
  - Tongue biting [Recovered/Resolved]
  - Exposure during pregnancy [Unknown]
  - Fatigue [Unknown]

NARRATIVE: CASE EVENT DATE: 19990524
